FAERS Safety Report 7283424-7 (Version None)
Quarter: 2011Q1

REPORT INFORMATION
  Report Type: 
  Country: None (occurrence: None)
  Receive Date: 20110209
  Receipt Date: 20101103
  Transmission Date: 20110831
  Serious: No
  Sender: FDA-Public Use
  Company Number: A0890433A

PATIENT
  Age: 63 Year
  Sex: Female
  Weight: 87 kg

DRUGS (4)
  1. NO CONCURRENT MEDICATIONS [Concomitant]
  2. CHANTIX [Suspect]
     Dates: start: 20070101
  3. PAXIL [Suspect]
     Dosage: 30MG PER DAY
     Route: 048
     Dates: start: 20070101
  4. WELLBUTRIN [Suspect]
     Dosage: 100MG PER DAY
     Route: 065
     Dates: start: 20070101

REACTIONS (9)
  - UNDERDOSE [None]
  - ABDOMINAL PAIN UPPER [None]
  - DRUG INEFFECTIVE [None]
  - FEAR [None]
  - DEPRESSION [None]
  - DRUG ADMINISTRATION ERROR [None]
  - VASOCONSTRICTION [None]
  - STRESS [None]
  - FEELING ABNORMAL [None]
